FAERS Safety Report 18533658 (Version 1)
Quarter: 2020Q4

REPORT INFORMATION
  Report Type: Spontaneous
  Country: US (occurrence: US)
  Receive Date: 20201123
  Receipt Date: 20201123
  Transmission Date: 20210114
  Serious: Yes (Other)
  Sender: FDA-Public Use
  Company Number: US-PFIZER INC-2020422647

PATIENT
  Sex: Male

DRUGS (2)
  1. CALCIUM CHLORIDE DIHYDRATE/MAGNESIUM CHLORIDE HEXAHYDRATE/POTASSIUM CHLORIDE/SODIUM ACETATE/SODIUM C [Suspect]
     Active Substance: CALCIUM CHLORIDE\MAGNESIUM CHLORIDE\POTASSIUM CHLORIDE\SODIUM ACETATE\SODIUM CHLORIDE
     Dosage: UNK, CYCLIC
  2. METRONIDAZOLE. [Concomitant]
     Active Substance: METRONIDAZOLE
     Dosage: UNK

REACTIONS (5)
  - Product use issue [Unknown]
  - Off label use [Unknown]
  - Urticaria [Recovered/Resolved]
  - Drug intolerance [Recovered/Resolved]
  - Drug hypersensitivity [Recovered/Resolved]
